FAERS Safety Report 21644775 (Version 4)
Quarter: 2022Q4

REPORT INFORMATION
  Report Type: Report from Study
  Country: KR (occurrence: KR)
  Receive Date: 20221125
  Receipt Date: 20221213
  Transmission Date: 20230112
  Serious: Yes (Death, Other)
  Sender: FDA-Public Use
  Company Number: KR-BRISTOL-MYERS SQUIBB COMPANY-2022-143607

PATIENT
  Age: 63 Year
  Sex: Male

DRUGS (22)
  1. POMALIDOMIDE [Suspect]
     Active Substance: POMALIDOMIDE
     Indication: Plasma cell myeloma refractory
     Dosage: DAYS 1-14 OF 21-DAY CYCLE ONCE IN 3 WEEKS
     Route: 048
     Dates: start: 20220516, end: 20220529
  2. POMALIDOMIDE [Suspect]
     Active Substance: POMALIDOMIDE
     Dosage: DAYS 1-14 OF 21-DAY CYCLE ONCE IN 3 WEEKS
     Route: 048
     Dates: start: 20220607, end: 20220620
  3. POMALIDOMIDE [Suspect]
     Active Substance: POMALIDOMIDE
     Dosage: DAYS 1-14 OF 21-DAY CYCLE ONCE IN 3 WEEKS
     Route: 048
     Dates: start: 20221031
  4. DEXAMETHASONE [Suspect]
     Active Substance: DEXAMETHASONE
     Indication: Plasma cell myeloma refractory
     Dosage: ON THE DAY OF AND DAY AFTER BORTEZOMIB
     Route: 048
     Dates: start: 20220516, end: 20220527
  5. DEXAMETHASONE [Suspect]
     Active Substance: DEXAMETHASONE
     Dosage: ON THE DAY OF AND DAY AFTER BORTEZOMIB
     Route: 048
     Dates: start: 20220506, end: 20220618
  6. DEXAMETHASONE [Suspect]
     Active Substance: DEXAMETHASONE
     Dosage: ON THE DAY OF AND DAY AFTER BORTEZOMIB
     Route: 048
     Dates: start: 20221031
  7. BORTEZOMIB [Suspect]
     Active Substance: BORTEZOMIB
     Indication: Plasma cell myeloma refractory
     Dosage: CYCLICALLY
     Route: 058
     Dates: start: 20220516
  8. BORTEZOMIB [Suspect]
     Active Substance: BORTEZOMIB
     Dosage: CYCLICALLY
     Route: 058
     Dates: start: 20220523
  9. BORTEZOMIB [Suspect]
     Active Substance: BORTEZOMIB
     Dosage: CYCLICALLY
     Route: 058
     Dates: start: 20220607, end: 20220614
  10. BORTEZOMIB [Suspect]
     Active Substance: BORTEZOMIB
     Dosage: CYCLICALLY
     Route: 058
     Dates: start: 20221031
  11. NALOXONE HYDROCHLORIDE\OXYCODONE HYDROCHLORIDE [Concomitant]
     Active Substance: NALOXONE HYDROCHLORIDE\OXYCODONE HYDROCHLORIDE
     Indication: Product used for unknown indication
     Dates: start: 20201112
  12. OXYCODONE HYDROCHLORIDE [Concomitant]
     Active Substance: OXYCODONE HYDROCHLORIDE
     Indication: Product used for unknown indication
     Dates: start: 20191228
  13. ZOLPIDEM [Concomitant]
     Active Substance: ZOLPIDEM TARTRATE
     Indication: Product used for unknown indication
     Dates: start: 20200806
  14. SULFAMETHOXAZOLE\TRIMETHOPRIM [Concomitant]
     Active Substance: SULFAMETHOXAZOLE\TRIMETHOPRIM
     Indication: Product used for unknown indication
     Dates: start: 20220516
  15. ASPIRIN [Concomitant]
     Active Substance: ASPIRIN
     Indication: Product used for unknown indication
     Dates: start: 20220516
  16. AMITRIPTYLINE [Concomitant]
     Active Substance: AMITRIPTYLINE
     Indication: Product used for unknown indication
     Dates: start: 20220411
  17. NYSTATIN [Concomitant]
     Active Substance: NYSTATIN
     Indication: Product used for unknown indication
     Dates: start: 20220929
  18. BENZYDAMINE [Concomitant]
     Active Substance: BENZYDAMINE
     Indication: Product used for unknown indication
     Dates: start: 20220929
  19. ENTECAVIR [Concomitant]
     Active Substance: ENTECAVIR
     Indication: Product used for unknown indication
     Dates: start: 20200706
  20. TAMSULOSIN [Concomitant]
     Active Substance: TAMSULOSIN
     Indication: Product used for unknown indication
     Dates: start: 20201209
  21. PREGABALIN [Concomitant]
     Active Substance: PREGABALIN
     Indication: Product used for unknown indication
     Dates: start: 20200616
  22. ATORVASTATIN [Concomitant]
     Active Substance: ATORVASTATIN
     Indication: Product used for unknown indication
     Dates: start: 20200723

REACTIONS (1)
  - Death [Fatal]

NARRATIVE: CASE EVENT DATE: 20221115
